FAERS Safety Report 14357129 (Version 7)
Quarter: 2018Q2

REPORT INFORMATION
  Report Type: Spontaneous
  Country: GB (occurrence: GB)
  Receive Date: 20180105
  Receipt Date: 20180629
  Transmission Date: 20180711
  Serious: Yes (Hospitalization, Other)
  Sender: FDA-Public Use
  Company Number: GB-BAUSCH-BL-2017-036073

PATIENT
  Age: 43 Year
  Sex: Male

DRUGS (13)
  1. CLOZARIL [Suspect]
     Active Substance: CLOZAPINE
     Dosage: AM
     Route: 048
  2. CLOZARIL [Suspect]
     Active Substance: CLOZAPINE
     Dosage: PM, 1 DAY
     Route: 048
     Dates: start: 19940809
  3. CLOZARIL [Suspect]
     Active Substance: CLOZAPINE
     Dosage: PM
     Route: 065
  4. CLOZARIL [Suspect]
     Active Substance: CLOZAPINE
     Dosage: PM
     Route: 048
     Dates: start: 19940804, end: 20171020
  5. CLOZARIL [Suspect]
     Active Substance: CLOZAPINE
     Indication: SCHIZOPHRENIA
     Dosage: AM
     Route: 048
     Dates: start: 19940804, end: 20171020
  6. CLOZARIL [Suspect]
     Active Substance: CLOZAPINE
     Dosage: AM
     Route: 065
  7. SIMVASTATIN. [Concomitant]
     Active Substance: SIMVASTATIN
     Indication: PRODUCT USED FOR UNKNOWN INDICATION
     Route: 065
  8. METFORMIN HYDROCHLORIDE. [Concomitant]
     Active Substance: METFORMIN HYDROCHLORIDE
     Indication: PRODUCT USED FOR UNKNOWN INDICATION
     Route: 065
  9. METFORMIN [Suspect]
     Active Substance: METFORMIN HYDROCHLORIDE
     Indication: DIABETES MELLITUS
     Route: 048
  10. CLOZARIL [Suspect]
     Active Substance: CLOZAPINE
     Dosage: START PERIOD 23 (YEARS)
     Route: 048
  11. SIMVASTATIN. [Suspect]
     Active Substance: SIMVASTATIN
     Indication: HYPERCHOLESTEROLAEMIA
     Dosage: PM
     Route: 048
  12. TRAJENTA [Suspect]
     Active Substance: LINAGLIPTIN
     Indication: DIABETES MELLITUS
     Dosage: AM
     Route: 048
  13. ATENOLOL. [Suspect]
     Active Substance: ATENOLOL
     Indication: ARRHYTHMIA
     Dosage: AM
     Route: 048

REACTIONS (4)
  - Drug dose omission [Unknown]
  - Sepsis [Recovered/Resolved with Sequelae]
  - Necrotising fasciitis [Unknown]
  - Gangrene [Unknown]

NARRATIVE: CASE EVENT DATE: 2017
